FAERS Safety Report 6084080-6 (Version None)
Quarter: 2009Q1

REPORT INFORMATION
  Report Type: 
  Country: None (occurrence: None)
  Receive Date: 20090217
  Receipt Date: 20090217
  Transmission Date: 20090719
  Serious: Yes (Other)
  Sender: FDA-Public Use
  Company Number: None

PATIENT
  Age: 75 Year
  Sex: Female
  Weight: 61.2356 kg

DRUGS (1)
  1. ARIMIDEX [Suspect]
     Indication: BREAST CANCER
     Dosage: 1 TABLET DAILY
     Dates: start: 20081104, end: 20090213

REACTIONS (15)
  - ABASIA [None]
  - ALOPECIA [None]
  - ARTHRALGIA [None]
  - ARTHROPATHY [None]
  - BACK DISORDER [None]
  - BLOOD PRESSURE INCREASED [None]
  - CONDITION AGGRAVATED [None]
  - COUGH [None]
  - DIARRHOEA [None]
  - DIZZINESS [None]
  - HOT FLUSH [None]
  - INSOMNIA [None]
  - NAUSEA [None]
  - PAIN IN EXTREMITY [None]
  - URTICARIA [None]
